FAERS Safety Report 17584207 (Version 1)
Quarter: 2020Q1

REPORT INFORMATION
  Report Type: Spontaneous
  Country: ES (occurrence: ES)
  Receive Date: 20200326
  Receipt Date: 20200326
  Transmission Date: 20200409
  Serious: Yes (Hospitalization, Other)
  Sender: FDA-Public Use
  Company Number: NVSC2020ES078206

PATIENT
  Age: 11 Year
  Sex: Male

DRUGS (4)
  1. LAMOTRIGINE. [Suspect]
     Active Substance: LAMOTRIGINE
     Indication: EPILEPSY
     Dosage: 100 MG
     Route: 065
     Dates: start: 20180121
  2. DEPAKINE [Suspect]
     Active Substance: VALPROATE SODIUM
     Indication: EPILEPSY
     Dosage: UNK
     Route: 065
  3. LAMOTRIGINE. [Suspect]
     Active Substance: LAMOTRIGINE
     Indication: SEIZURE
  4. DEPAKINE [Suspect]
     Active Substance: VALPROATE SODIUM
     Indication: SEIZURE

REACTIONS (19)
  - Burning sensation [Unknown]
  - Photosensitivity reaction [Unknown]
  - Visual impairment [Unknown]
  - Skin burning sensation [Unknown]
  - Skin exfoliation [Unknown]
  - Herpes virus infection [Unknown]
  - Gingival pain [Unknown]
  - Incorrect dosage administered [Unknown]
  - Pyrexia [Unknown]
  - Blister [Unknown]
  - Nail disorder [Not Recovered/Not Resolved]
  - Unevaluable event [Unknown]
  - Glossodynia [Unknown]
  - Nail discolouration [Unknown]
  - Stomatitis [Unknown]
  - Necrosis [Unknown]
  - Hair colour changes [Unknown]
  - Skin ulcer [Unknown]
  - Stevens-Johnson syndrome [Unknown]

NARRATIVE: CASE EVENT DATE: 20180213
